FAERS Safety Report 5332701-5 (Version None)
Quarter: 2007Q2

REPORT INFORMATION
  Report Type: 
  Country: None (occurrence: None)
  Receive Date: 20070521
  Receipt Date: 20070510
  Transmission Date: 20071010
  Serious: Yes (Other)
  Sender: FDA-Public Use
  Company Number: GXKR2007GB04208

PATIENT
  Age: 19 Year
  Sex: Female
  Weight: 57 kg

DRUGS (1)
  1. DOXYCYCLINE [Suspect]
     Dosage: 100 MG, ORAL
     Route: 048
     Dates: start: 20070405, end: 20070418

REACTIONS (4)
  - BACK PAIN [None]
  - DYSURIA [None]
  - GASTROOESOPHAGEAL REFLUX DISEASE [None]
  - PAIN [None]
